FAERS Safety Report 9397871 (Version 2)
Quarter: 2013Q3

REPORT INFORMATION
  Report Type: Spontaneous
  Country: AT (occurrence: AT)
  Receive Date: 20130712
  Receipt Date: 20130909
  Transmission Date: 20140515
  Serious: Yes (Life-Threatening, Hospitalization)
  Sender: FDA-Public Use
  Company Number: PHHY2013AT073442

PATIENT
  Age: 48 Year
  Sex: Male

DRUGS (1)
  1. GILENYA [Suspect]
     Route: 048
     Dates: start: 20130527

REACTIONS (9)
  - Circulatory collapse [Unknown]
  - Pulmonary embolism [Unknown]
  - Dyspnoea [Unknown]
  - Post thrombotic syndrome [Unknown]
  - Fibrin D dimer increased [Unknown]
  - Joint swelling [Unknown]
  - Pain in extremity [Unknown]
  - Erythema [Unknown]
  - Thrombophlebitis superficial [Unknown]
